FAERS Safety Report 23895916 (Version 1)
Quarter: 2024Q2

REPORT INFORMATION
  Report Type: Report from Study
  Country: US (occurrence: None)
  Receive Date: 20240524
  Receipt Date: 20240524
  Transmission Date: 20240715
  Serious: Yes (Other)
  Sender: FDA-Public Use
  Company Number: 2024A116874

PATIENT
  Age: 915 Month
  Sex: Female

DRUGS (1)
  1. FARXIGA [Suspect]
     Active Substance: DAPAGLIFLOZIN PROPANEDIOL
     Route: 048

REACTIONS (4)
  - Myocardial infarction [Unknown]
  - Hypergammaglobulinaemia benign monoclonal [Unknown]
  - Renal impairment [Unknown]
  - Dysphonia [Unknown]
